FAERS Safety Report 7996453-2 (Version None)
Quarter: 2011Q4

REPORT INFORMATION
  Report Type: 
  Country: None (occurrence: None)
  Receive Date: 20111220
  Receipt Date: 20080729
  Transmission Date: 20120403
  Serious: Yes (Other)
  Sender: FDA-Public Use
  Company Number: PHHY2008MX043805

PATIENT
  Age: 72 Year
  Sex: Female

DRUGS (3)
  1. ADALAT [Concomitant]
     Dosage: 1 DF, QD
  2. DIOVAN [Suspect]
     Indication: HYPERTENSION
     Dosage: 80 MG
     Dates: start: 20050801
  3. METOPROLOL TARTRATE [Concomitant]
     Dosage: 1 DF, QD

REACTIONS (3)
  - BLOOD CHOLESTEROL INCREASED [None]
  - IRON DEFICIENCY [None]
  - DIABETES MELLITUS [None]
